FAERS Safety Report 6601912-0 (Version None)
Quarter: 2010Q1

REPORT INFORMATION
  Report Type: 
  Country: None (occurrence: None)
  Receive Date: 20100225
  Receipt Date: 20100215
  Transmission Date: 20100710
  Serious: Yes (Other)
  Sender: FDA-Public Use
  Company Number: US-PFIZER INC-2010020750

PATIENT
  Sex: Female

DRUGS (2)
  1. NEURONTIN [Suspect]
     Dosage: 200 MG, 4X/DAY
  2. NEURONTIN [Suspect]
     Dosage: 200 MG, 2 OR 3X.DAY

REACTIONS (3)
  - DYSPNOEA [None]
  - PALPITATIONS [None]
  - WITHDRAWAL SYNDROME [None]
